FAERS Safety Report 23986950 (Version 1)
Quarter: 2024Q2

REPORT INFORMATION
  Report Type: Spontaneous
  Country: US (occurrence: US)
  Receive Date: 20240618
  Receipt Date: 20240618
  Transmission Date: 20240716
  Serious: No
  Sender: FDA-Public Use
  Company Number: US-ACELLA PHARMACEUTICALS, LLC-2024ALO00008

PATIENT
  Age: 5 Year
  Sex: Male
  Weight: 22.676 kg

DRUGS (3)
  1. GABAPENTIN [Suspect]
     Active Substance: GABAPENTIN
     Indication: Autism spectrum disorder
     Dosage: 50 MG (1 ML), 1X/DAY
     Route: 048
     Dates: start: 20240105
  2. GABAPENTIN [Suspect]
     Active Substance: GABAPENTIN
     Indication: Aggression
  3. GABAPENTIN [Suspect]
     Active Substance: GABAPENTIN
     Indication: Anxiety

REACTIONS (2)
  - Rash [Recovered/Resolved]
  - Pruritus [Not Recovered/Not Resolved]

NARRATIVE: CASE EVENT DATE: 20240106
